FAERS Safety Report 18388075 (Version 5)
Quarter: 2021Q3

REPORT INFORMATION
  Report Type: Report from Study
  Country: US (occurrence: US)
  Receive Date: 20201015
  Receipt Date: 20210921
  Transmission Date: 20211014
  Serious: Yes (Other)
  Sender: FDA-Public Use
  Company Number: US-TAKEDA-2020TUS042856

PATIENT
  Age: 80 Year
  Sex: Female

DRUGS (7)
  1. PONATINIB [Suspect]
     Active Substance: PONATINIB
     Indication: CHRONIC MYELOID LEUKAEMIA
     Dosage: 15 MILLIGRAM, QOD
     Route: 065
     Dates: start: 20200114
  2. VITAMIN D [COLECALCIFEROL] [Concomitant]
     Active Substance: CHOLECALCIFEROL
     Dosage: UNK
     Route: 065
  3. LISINOPRIL. [Concomitant]
     Active Substance: LISINOPRIL
     Dosage: 20 MILLIGRAM
     Route: 065
  4. LISINOPRIL. [Concomitant]
     Active Substance: LISINOPRIL
     Dosage: 40 MILLIGRAM
     Route: 065
  5. ASPIRIN (E.C.) [Concomitant]
     Active Substance: ASPIRIN
     Dosage: UNK
     Route: 065
  6. LISINOPRIL. [Concomitant]
     Active Substance: LISINOPRIL
     Indication: HYPERTENSION
     Dosage: 10 MILLIGRAM
     Route: 065
  7. PONATINIB [Suspect]
     Active Substance: PONATINIB
     Indication: ACUTE LEUKAEMIA

REACTIONS (16)
  - Decreased interest [Unknown]
  - Gait disturbance [Unknown]
  - Pyrexia [Unknown]
  - Constipation [Unknown]
  - Malaise [Unknown]
  - Urinary incontinence [Unknown]
  - Fatigue [Unknown]
  - Neuropathy peripheral [Unknown]
  - Blood pressure increased [Unknown]
  - Rash [Unknown]
  - Vomiting [Unknown]
  - Rhinorrhoea [Unknown]
  - Abdominal pain upper [Unknown]
  - Medication error [Unknown]
  - Skin ulcer [Unknown]
  - Catheter site pain [Unknown]

NARRATIVE: CASE EVENT DATE: 202010
